FAERS Safety Report 7921724-5 (Version None)
Quarter: 2011Q4

REPORT INFORMATION
  Report Type: 
  Country: None (occurrence: None)
  Receive Date: 20111117
  Receipt Date: 20111111
  Transmission Date: 20120403
  Serious: Yes (Hospitalization)
  Sender: FDA-Public Use
  Company Number: CA-GLAXOSMITHKLINE-A0951623A

PATIENT
  Sex: Female
  Weight: 76 kg

DRUGS (3)
  1. SPIRIVA [Concomitant]
     Indication: CHRONIC OBSTRUCTIVE PULMONARY DISEASE
     Dosage: 18MCG PER DAY
     Route: 065
     Dates: start: 20040430
  2. ADVAIR DISKUS 100/50 [Suspect]
     Indication: CHRONIC OBSTRUCTIVE PULMONARY DISEASE
     Dosage: 2PUFF TWICE PER DAY
     Route: 055
     Dates: start: 20040130
  3. TIMOPTIC [Concomitant]
     Indication: GLAUCOMA
     Dosage: 1DROP PER DAY
     Route: 047

REACTIONS (1)
  - NON-SMALL CELL LUNG CANCER [None]
